FAERS Safety Report 16347438 (Version 1)
Quarter: 2019Q2

REPORT INFORMATION
  Report Type: Spontaneous
  Country: US (occurrence: US)
  Receive Date: 20190523
  Receipt Date: 20190523
  Transmission Date: 20190711
  Serious: Yes (Other)
  Sender: FDA-Public Use
  Company Number: US-HIKMA PHARMACEUTICALS USA INC.-US-H14001-19-03212

PATIENT
  Sex: Male

DRUGS (8)
  1. SOMA [Suspect]
     Active Substance: CARISOPRODOL
     Indication: TREMOR
     Route: 065
  2. CARISOPRODOL. [Suspect]
     Active Substance: CARISOPRODOL
     Indication: TREMOR
     Route: 065
  3. DIAZEPAM. [Concomitant]
     Active Substance: DIAZEPAM
     Indication: PRODUCT USED FOR UNKNOWN INDICATION
     Route: 065
  4. CARISOPRODOL. [Suspect]
     Active Substance: CARISOPRODOL
     Indication: NERVE INJURY
  5. LYRICA [Suspect]
     Active Substance: PREGABALIN
     Indication: NERVE INJURY
  6. SOMA [Suspect]
     Active Substance: CARISOPRODOL
     Indication: NERVE INJURY
  7. LEXAPRO [Concomitant]
     Active Substance: ESCITALOPRAM OXALATE
     Indication: ANTIDEPRESSANT THERAPY
     Route: 065
  8. LYRICA [Suspect]
     Active Substance: PREGABALIN
     Indication: TREMOR
     Route: 048

REACTIONS (3)
  - Oral pain [Unknown]
  - Oral neoplasm [Unknown]
  - Weight decreased [Unknown]
